FAERS Safety Report 9000128 (Version 1)
Quarter: 2013Q1

REPORT INFORMATION
  Report Type: Spontaneous
  Country: US (occurrence: US)
  Receive Date: 20130102
  Receipt Date: 20130102
  Transmission Date: 20140127
  Serious: Yes (Hospitalization)
  Sender: FDA-Public Use
  Company Number: US-BAYER-2012-135109

PATIENT
  Age: 72 Year
  Sex: Female

DRUGS (4)
  1. CIPRO [Suspect]
     Indication: INFECTION
     Dosage: 500 MG, UNK
     Route: 048
     Dates: end: 20121218
  2. PREDNISONE [Concomitant]
  3. CORTISONE [Concomitant]
     Indication: ARTHRITIS
  4. LORTAB [Concomitant]

REACTIONS (7)
  - Suicidal ideation [Not Recovered/Not Resolved]
  - Muscular weakness [Not Recovered/Not Resolved]
  - Pain [Not Recovered/Not Resolved]
  - Abnormal behaviour [Not Recovered/Not Resolved]
  - Confusional state [Not Recovered/Not Resolved]
  - Depression [Not Recovered/Not Resolved]
  - Hallucination [Not Recovered/Not Resolved]
